FAERS Safety Report 5760230-3 (Version None)
Quarter: 2008Q2

REPORT INFORMATION
  Report Type: 
  Country: None (occurrence: None)
  Receive Date: 20080602
  Receipt Date: 20080520
  Transmission Date: 20081010
  Serious: Yes (Other)
  Sender: FDA-Public Use
  Company Number: 2008013413

PATIENT
  Age: 12 Year
  Sex: Female
  Weight: 36.2878 kg

DRUGS (1)
  1. LISTERINE TOOTH DEFENSE (SODIUM FLUORIDE) [Suspect]
     Indication: DENTAL DISORDER PROPHYLAXIS
     Dosage: LESS 1/2 A CAPFUL ONE TIME, ORAL
     Route: 048
     Dates: start: 20080515, end: 20080515

REACTIONS (5)
  - APPLICATION SITE BURN [None]
  - HEADACHE [None]
  - ORAL MUCOSAL EXFOLIATION [None]
  - PHARMACEUTICAL PRODUCT COMPLAINT [None]
  - STOMACH DISCOMFORT [None]
